FAERS Safety Report 9218940 (Version 1)
Quarter: 2013Q2

REPORT INFORMATION
  Report Type: Spontaneous
  Country: US (occurrence: None)
  Receive Date: 20130405
  Receipt Date: 20130405
  Transmission Date: 20140414
  Serious: Yes (Other)
  Sender: FDA-Public Use
  Company Number: None

PATIENT
  Age: 17 Year
  Sex: Male
  Weight: 117.2 kg

DRUGS (2)
  1. ZONEGRAN [Suspect]
     Route: 048
     Dates: start: 20070315
  2. ZONEGRAN [Suspect]
     Indication: MYOCLONIC EPILEPSY
     Route: 048
     Dates: start: 20070315

REACTIONS (2)
  - Adverse event [None]
  - Hallucination [None]
